FAERS Safety Report 6583641-5 (Version None)
Quarter: 2010Q1

REPORT INFORMATION
  Report Type: 
  Country: None (occurrence: None)
  Receive Date: 20100213
  Receipt Date: 20100213
  Transmission Date: 20100710
  Serious: Yes (Disabling)
  Sender: FDA-Public Use
  Company Number: None

PATIENT
  Age: 42 Year
  Sex: Male
  Weight: 84.1 kg

DRUGS (1)
  1. ALDARA [Suspect]
     Indication: ANOGENITAL WARTS
     Dosage: 12 SACHETS 3X/WEEK TOPICAL
     Route: 061
     Dates: start: 20091201, end: 20100101

REACTIONS (12)
  - ANAESTHESIA [None]
  - BLOODY DISCHARGE [None]
  - DIZZINESS [None]
  - EAR PAIN [None]
  - ERYTHEMA [None]
  - FATIGUE [None]
  - FEELING ABNORMAL [None]
  - HEADACHE [None]
  - HYPOAESTHESIA [None]
  - MUSCLE TWITCHING [None]
  - PENIS DISORDER [None]
  - WOUND SECRETION [None]
